FAERS Safety Report 11981608 (Version 1)
Quarter: 2016Q1

REPORT INFORMATION
  Report Type: Spontaneous
  Country: US (occurrence: US)
  Receive Date: 20160131
  Receipt Date: 20160131
  Transmission Date: 20160526
  Serious: Yes (Other)
  Sender: FDA-Public Use
  Company Number: US-ROXANE LABORATORIES, INC.-2016-RO-00143RO

PATIENT
  Age: 6 Year
  Sex: Female

DRUGS (1)
  1. DEXAMETHASONE TABLETS USP, 1.5 MG [Suspect]
     Active Substance: DEXAMETHASONE
     Indication: OVARIAN GERM CELL TERATOMA
     Route: 065

REACTIONS (1)
  - Delirium [Unknown]
